FAERS Safety Report 6182534-5 (Version None)
Quarter: 2009Q2

REPORT INFORMATION
  Report Type: 
  Country: None (occurrence: None)
  Receive Date: 20090507
  Receipt Date: 20090427
  Transmission Date: 20091009
  Serious: Yes (Hospitalization)
  Sender: FDA-Public Use
  Company Number: US-AMGEN-COG341719

PATIENT
  Sex: Female
  Weight: 52.7 kg

DRUGS (4)
  1. ENBREL [Suspect]
     Indication: RHEUMATOID ARTHRITIS
     Dates: start: 20081202, end: 20090401
  2. METHOTREXATE [Concomitant]
     Dates: start: 20081201
  3. SYNTHROID [Concomitant]
     Route: 048
  4. NEURONTIN [Concomitant]
     Route: 048

REACTIONS (8)
  - ASTHENIA [None]
  - ATRIAL FIBRILLATION [None]
  - BLISTER [None]
  - DIZZINESS [None]
  - DYSPNOEA [None]
  - HEADACHE [None]
  - HYPERHIDROSIS [None]
  - MUSCULOSKELETAL DISCOMFORT [None]
